FAERS Safety Report 18793027 (Version 1)
Quarter: 2021Q1

REPORT INFORMATION
  Report Type: Other
  Country: BR (occurrence: BR)
  Receive Date: 20210127
  Receipt Date: 20210127
  Transmission Date: 20210419
  Serious: Yes (Death, Life-Threatening, Hospitalization, Other)
  Sender: FDA-Public Use
  Company Number: BR-ASTELLAS-2021US002627

PATIENT
  Age: 34 Year
  Sex: Female
  Weight: 56 kg

DRUGS (43)
  1. VANCOMYCIN [Suspect]
     Active Substance: VANCOMYCIN
     Indication: TRACHEOBRONCHITIS
  2. PROPRANOLOL [Suspect]
     Active Substance: PROPRANOLOL HYDROCHLORIDE
     Indication: DYSPNOEA
     Route: 065
  3. MACRODANTIN [Suspect]
     Active Substance: NITROFURANTOIN
     Indication: PROPHYLAXIS
     Dosage: UNK UNK, UNKNOWN FREQ.
     Route: 065
  4. FUROSEMIDE. [Suspect]
     Active Substance: FUROSEMIDE
     Indication: OEDEMA PERIPHERAL
     Route: 065
  5. GANCICLOVIR. [Suspect]
     Active Substance: GANCICLOVIR
     Indication: FUSARIUM INFECTION
  6. NOREPINEPHRINE. [Concomitant]
     Active Substance: NOREPINEPHRINE
     Indication: PRODUCT USED FOR UNKNOWN INDICATION
     Dosage: UNK UNK, UNKNOWN FREQ.
     Route: 065
  7. AMPHOTERICIN B, LIPOSOME [Suspect]
     Active Substance: AMPHOTERICIN B
     Indication: BRONCHOPULMONARY ASPERGILLOSIS
     Dosage: UNK UNK, UNKNOWN FREQ.
     Route: 065
  8. AMPHOTERICIN B, LIPOSOME [Suspect]
     Active Substance: AMPHOTERICIN B
     Indication: FUSARIUM INFECTION
  9. AMPHOTERICIN B, LIPOSOME [Suspect]
     Active Substance: AMPHOTERICIN B
     Indication: TRACHEOBRONCHITIS
  10. CLARITHROMYCIN. [Suspect]
     Active Substance: CLARITHROMYCIN
     Indication: TRACHEOBRONCHITIS
  11. NYSTATIN. [Suspect]
     Active Substance: NYSTATIN
     Indication: FUSARIUM INFECTION
  12. FUROSEMIDE. [Suspect]
     Active Substance: FUROSEMIDE
     Indication: PULMONARY CONGESTION
  13. CEFTRIAXONE. [Suspect]
     Active Substance: CEFTRIAXONE
     Indication: PYELONEPHRITIS
     Dosage: UNK UNK, UNKNOWN FREQ.
     Route: 030
  14. GANCICLOVIR. [Suspect]
     Active Substance: GANCICLOVIR
     Indication: BRONCHOPULMONARY ASPERGILLOSIS
  15. PROPRANOLOL [Suspect]
     Active Substance: PROPRANOLOL HYDROCHLORIDE
     Indication: CARDIAC FAILURE CHRONIC
  16. NITRIC OXIDE. [Concomitant]
     Active Substance: NITRIC OXIDE
     Indication: PRODUCT USED FOR UNKNOWN INDICATION
     Dosage: UNK UNK, UNKNOWN FREQ.
     Route: 065
  17. VITAMINS NOS [Concomitant]
     Active Substance: VITAMINS
     Indication: PRODUCT USED FOR UNKNOWN INDICATION
     Dosage: UNK UNK, UNKNOWN FREQ.
     Route: 065
  18. NYSTATIN. [Suspect]
     Active Substance: NYSTATIN
     Indication: BRONCHOPULMONARY ASPERGILLOSIS
  19. VANCOMYCIN [Suspect]
     Active Substance: VANCOMYCIN
     Indication: FUSARIUM INFECTION
     Dosage: UNK UNK, UNKNOWN FREQ.
     Route: 065
  20. GANCICLOVIR. [Suspect]
     Active Substance: GANCICLOVIR
     Indication: TRACHEOBRONCHITIS
     Dosage: UNK UNK, UNKNOWN FREQ.
     Route: 065
  21. PROPRANOLOL [Suspect]
     Active Substance: PROPRANOLOL HYDROCHLORIDE
     Indication: MITRAL VALVE STENOSIS
  22. IMIPENEM [Suspect]
     Active Substance: IMIPENEM
     Indication: TRACHEOBRONCHITIS
     Dosage: UNK UNK, UNKNOWN FREQ.
     Route: 065
  23. SALINE [SODIUM CHLORIDE] [Concomitant]
     Active Substance: SODIUM CHLORIDE
     Indication: PRODUCT USED FOR UNKNOWN INDICATION
     Dosage: UNK UNK, UNKNOWN FREQ.
     Route: 065
  24. FUROSEMIDE. [Suspect]
     Active Substance: FUROSEMIDE
     Indication: DYSPNOEA
  25. FUROSEMIDE. [Suspect]
     Active Substance: FUROSEMIDE
     Indication: CARDIAC FAILURE CHRONIC
  26. CEFTRIAXONE. [Suspect]
     Active Substance: CEFTRIAXONE
     Route: 030
  27. DIPYRONE [Suspect]
     Active Substance: DIPYRONE
     Indication: PRODUCT USED FOR UNKNOWN INDICATION
     Dosage: UNK UNK, UNKNOWN FREQ.
     Route: 065
  28. GRANULOCYTE COLONY STIMULATING FACTOR [Concomitant]
     Active Substance: GRANULOCYTE COLONY-STIMULATING FACTOR NOS
     Indication: PRODUCT USED FOR UNKNOWN INDICATION
     Dosage: UNK UNK, UNKNOWN FREQ.
     Route: 065
  29. NYSTATIN. [Suspect]
     Active Substance: NYSTATIN
     Indication: TRACHEOBRONCHITIS
     Dosage: UNK UNK, UNKNOWN FREQ.
     Route: 048
  30. FUROSEMIDE. [Suspect]
     Active Substance: FUROSEMIDE
     Indication: MITRAL VALVE STENOSIS
     Dosage: UNK UNK, UNKNOWN FREQ.
     Route: 065
  31. VANCOMYCIN [Suspect]
     Active Substance: VANCOMYCIN
     Indication: BRONCHOPULMONARY ASPERGILLOSIS
  32. CEFTRIAXONE. [Suspect]
     Active Substance: CEFTRIAXONE
     Indication: TRACHEOBRONCHITIS
     Dosage: UNK UNK, UNKNOWN FREQ.
     Route: 065
  33. NITROFURANTOIN. [Suspect]
     Active Substance: NITROFURANTOIN
     Indication: INFECTION PROPHYLAXIS
     Dosage: UNK UNK, UNKNOWN FREQ.
     Route: 065
  34. IMIPENEM [Suspect]
     Active Substance: IMIPENEM
     Indication: BRONCHOPULMONARY ASPERGILLOSIS
  35. DOBUTAMINE [Concomitant]
     Active Substance: DOBUTAMINE HYDROCHLORIDE
     Indication: PRODUCT USED FOR UNKNOWN INDICATION
     Dosage: UNK UNK, UNKNOWN FREQ.
     Route: 065
  36. PROPRANOLOL [Suspect]
     Active Substance: PROPRANOLOL HYDROCHLORIDE
     Indication: PULMONARY HYPERTENSION
  37. CLARITHROMYCIN. [Suspect]
     Active Substance: CLARITHROMYCIN
     Indication: FUSARIUM INFECTION
     Dosage: UNK UNK, UNKNOWN FREQ.
     Route: 065
  38. CLARITHROMYCIN. [Suspect]
     Active Substance: CLARITHROMYCIN
     Indication: BRONCHOPULMONARY ASPERGILLOSIS
  39. FUROSEMIDE. [Suspect]
     Active Substance: FUROSEMIDE
     Indication: PULMONARY HYPERTENSION
  40. PROPRANOLOL [Suspect]
     Active Substance: PROPRANOLOL HYDROCHLORIDE
     Indication: OEDEMA PERIPHERAL
  41. IMIPENEM [Suspect]
     Active Substance: IMIPENEM
     Indication: FUSARIUM INFECTION
  42. METAMIZOL [METAMIZOLE MAGNESIUM] [Suspect]
     Active Substance: METAMIZOLE MAGNESIUM
     Indication: TRACHEOBRONCHITIS
     Dosage: UNK UNK, UNKNOWN FREQ.
     Route: 065
  43. OXYTOCIN. [Concomitant]
     Active Substance: OXYTOCIN
     Indication: PRODUCT USED FOR UNKNOWN INDICATION
     Dosage: UNK UNK, UNKNOWN FREQ.
     Route: 065

REACTIONS (32)
  - Fungal infection [Fatal]
  - Agranulocytosis [Fatal]
  - Dyspnoea [Fatal]
  - Hypotension [Fatal]
  - Pneumonia necrotising [Fatal]
  - Oliguria [Fatal]
  - Cough [Fatal]
  - Bronchopulmonary aspergillosis [Fatal]
  - Metabolic acidosis [Fatal]
  - Hyperpyrexia [Fatal]
  - Agitation [Fatal]
  - Respiratory distress [Fatal]
  - Multiple organ dysfunction syndrome [Fatal]
  - Seizure [Fatal]
  - Oxygen saturation decreased [Fatal]
  - Leukopenia [Fatal]
  - Acute kidney injury [Fatal]
  - Fusarium infection [Fatal]
  - Wheezing [Fatal]
  - Cardiogenic shock [Fatal]
  - Postpartum sepsis [Fatal]
  - Neutropenia [Fatal]
  - Septic shock [Fatal]
  - Bone marrow failure [Fatal]
  - Depressed level of consciousness [Fatal]
  - Exposure during pregnancy [Fatal]
  - Oral candidiasis [Fatal]
  - Systemic inflammatory response syndrome [Fatal]
  - Pulmonary congestion [Fatal]
  - Febrile neutropenia [Fatal]
  - Cardiac arrest [Fatal]
  - Pyrexia [Fatal]
